FAERS Safety Report 5004957-X (Version None)
Quarter: 2006Q1

REPORT INFORMATION
  Report Type: 
  Country: None (occurrence: None)
  Receive Date: 20060321
  Receipt Date: 20051212
  Transmission Date: 20060701
  Serious: No
  Sender: FDA-Public Use
  Company Number: YPA20050515

PATIENT
  Age: 73 Year
  Sex: Male
  Weight: 79.5 kg

DRUGS (5)
  1. VESICARE [Suspect]
     Indication: POST PROCEDURAL URINE LEAK
     Dosage: 10 MG, UID/QD, ORAL
     Route: 048
     Dates: start: 20050809, end: 20050901
  2. VESICARE [Suspect]
     Indication: POST PROCEDURAL URINE LEAK
     Dosage: 10 MG, UID/QD, ORAL
     Route: 048
     Dates: start: 20051006
  3. PREVACID [Concomitant]
  4. HYALURONIC ACID (HYALURONIC ACID) [Concomitant]
  5. TYLENOL-500 [Concomitant]

REACTIONS (3)
  - DRUG INEFFECTIVE [None]
  - HEADACHE [None]
  - PRURITUS [None]
